FAERS Safety Report 9206609 (Version 1)
Quarter: 2013Q1

REPORT INFORMATION
  Report Type: Spontaneous
  Country: US (occurrence: None)
  Receive Date: 20120731
  Receipt Date: 20120731
  Transmission Date: 20140127
  Serious: No
  Sender: FDA-Public Use
  Company Number: 2012MZ000332

PATIENT
  Age: 40 Year
  Sex: Female
  Weight: 65.77 kg

DRUGS (1)
  1. XEOMIN [Suspect]
     Indication: PRODUCT USED FOR UNKNOWN INDICATION
     Dosage: 37 U
     Dates: start: 20120330, end: 20120330

REACTIONS (1)
  - Therapeutic response decreased [None]
